FAERS Safety Report 14730175 (Version 1)
Quarter: 2018Q2

REPORT INFORMATION
  Report Type: Spontaneous
  Country: IT (occurrence: IT)
  Receive Date: 20180406
  Receipt Date: 20180406
  Transmission Date: 20180711
  Serious: Yes (Hospitalization)
  Sender: FDA-Public Use
  Company Number: IT-TEVA-2018-IT-876740

PATIENT
  Age: 93 Year
  Sex: Female

DRUGS (3)
  1. DIURESIX 10 MG COMPRESSE [Concomitant]
     Route: 048
  2. CONGESCOR 2,5 MG, COMPRESSE FILM-RIVESTITE [Concomitant]
     Route: 048
  3. ZOLPIDEM [Suspect]
     Active Substance: ZOLPIDEM\ZOLPIDEM TARTRATE
     Indication: DRUG ABUSE
     Route: 048
     Dates: start: 20171014, end: 20171014

REACTIONS (2)
  - Sopor [Unknown]
  - Atrioventricular block [Unknown]

NARRATIVE: CASE EVENT DATE: 20171014
